FAERS Safety Report 15601407 (Version 2)
Quarter: 2019Q2

REPORT INFORMATION
  Report Type: Spontaneous
  Country: US (occurrence: US)
  Receive Date: 20181109
  Receipt Date: 20190528
  Transmission Date: 20190711
  Serious: No
  Sender: FDA-Public Use
  Company Number: US-PFIZER INC-2018452025

PATIENT
  Age: 68 Year
  Sex: Female
  Weight: 56.7 kg

DRUGS (31)
  1. BUTRANS [Concomitant]
     Active Substance: BUPRENORPHINE
     Dosage: 10 UG, WEEKLY (10 MCG/HR PTWK, EVERY 7 DAYS)
  2. GABAPENTIN. [Concomitant]
     Active Substance: GABAPENTIN
     Indication: NEUROPATHY PERIPHERAL
     Dosage: 300 MG, 3X/DAY
     Route: 048
  3. VITAMIN C [Concomitant]
     Active Substance: ASCORBIC ACID
     Dosage: 500 MG, DAILY
  4. HYDROCORTISONE. [Concomitant]
     Active Substance: HYDROCORTISONE
     Indication: RASH PRURITIC
     Dosage: UNK UNK, 2X/DAY (APPLY SPARINGLY UNTIL CLEAR, LIMIT TO 2 WKS AT ATIME)
  5. METAMUCIL THERAPY FOR REGULARITY [Concomitant]
     Active Substance: PSYLLIUM HUSK
     Dosage: UNK UNK, 3X/DAY (1 TABLESPOON MIXED WITH WATER OR JUICE)
  6. METHOTREXATE. [Concomitant]
     Active Substance: METHOTREXATE
     Dosage: 4 DF, WEEKLY (FOUR TABLETS ONCE A WEEK )
     Route: 048
  7. REFRESH [POLYVINYL ALCOHOL;POVIDONE] [Concomitant]
     Dosage: UNK (SOLN)
  8. SULFASALAZINE (ENTERIC COATED) [Concomitant]
     Active Substance: SULFASALAZINE
     Dosage: 1000 MG, 2X/DAY
     Route: 048
  9. DOXYCYCLINE MONOHYDRATE [Concomitant]
     Active Substance: DOXYCYCLINE
     Dosage: 100 MG, DAILY (TAKE WITH ATLEAST 8 OZ OF WATER. DON^T LIE DOWN FOR 30 MINS AFTER TAKING)
     Route: 048
  10. LISINOPRIL. [Concomitant]
     Active Substance: LISINOPRIL
     Dosage: 2.5 MG, DAILY
     Route: 048
  11. OMEPRAZOLE. [Concomitant]
     Active Substance: OMEPRAZOLE
     Dosage: 40 MG, DAILY
     Route: 048
  12. RED YEAST RICE [Concomitant]
     Active Substance: DIETARY SUPPLEMENT
     Dosage: 600 MG, DAILY
     Route: 048
  13. VITAMIN B12 [Concomitant]
     Active Substance: CYANOCOBALAMIN
     Dosage: 1000 UG, DAILY
  14. FIBER CHOICE PLUS CALCIUM [Concomitant]
     Dosage: 3 G, DAILY (2 BY MOUTH ONCE PER DAY)
     Route: 048
  15. ACETAMINOPHEN;HYDROCODONE [Concomitant]
     Active Substance: ACETAMINOPHEN\HYDROCODONE
     Indication: PAIN
     Dosage: 1 DF, 3X/DAY (5-325 MG)
     Route: 048
  16. LOPERAMIDE HCL [Concomitant]
     Active Substance: LOPERAMIDE HYDROCHLORIDE
     Indication: ENTEROSTOMY
  17. LOTRIMIN AF [MICONAZOLE NITRATE] [Concomitant]
     Indication: FUNGAL INFECTION
     Dosage: UNK (APPLY AS DIRECTED TO OSTOMY SITE)
  18. PROMETHAZINE HCL [Concomitant]
     Active Substance: PROMETHAZINE HYDROCHLORIDE
     Indication: NAUSEA
     Dosage: 25 MG, 4X/DAY (EVERY SIX HOURS IF NEEDED)
     Route: 048
  19. PROMETHAZINE HCL [Concomitant]
     Active Substance: PROMETHAZINE HYDROCHLORIDE
     Indication: VOMITING
  20. TRIAMCINOLONE ACETONIDE. [Concomitant]
     Active Substance: TRIAMCINOLONE ACETONIDE
     Indication: RASH
     Dosage: UNK UNK, 2X/DAY (APPLY TO RASH PEA SIZE)
  21. FERROUS SULFATE. [Concomitant]
     Active Substance: FERROUS SULFATE
     Dosage: 240 MG, 1X/DAY
     Route: 048
  22. FISH OIL CONCENTRATE [Concomitant]
     Active Substance: FISH OIL
     Dosage: 4 DF, DAILY
  23. SLOW-MAG [Concomitant]
     Active Substance: MAGNESIUM CHLORIDE
     Dosage: 1 DF, DAILY (71.5-119 MG 1 EACH DAY)
     Route: 048
  24. ACETAMINOPHEN. [Concomitant]
     Active Substance: ACETAMINOPHEN
     Dosage: 1000 MG, AS NEEDED
  25. CALCIUM CARBONATE. [Concomitant]
     Active Substance: CALCIUM CARBONATE
     Dosage: 500 MG, 2X/DAY
     Route: 048
  26. FOLIC ACID. [Concomitant]
     Active Substance: FOLIC ACID
     Dosage: 1 MG, 1X/DAY
     Route: 048
  27. FUROSEMIDE. [Concomitant]
     Active Substance: FUROSEMIDE
     Indication: OEDEMA
     Dosage: UNK UNK, 1X/DAY(ONE-HALF TO ONE TABLET ONCE DAILY)
     Route: 048
  28. XELJANZ XR [Suspect]
     Active Substance: TOFACITINIB CITRATE
     Indication: RHEUMATOID ARTHRITIS
     Dosage: 11 MG, 1X/DAY(11MG BY MOUTH ONCE DAILY)
     Route: 048
     Dates: start: 20181009, end: 20181016
  29. LOPERAMIDE HCL [Concomitant]
     Active Substance: LOPERAMIDE HYDROCHLORIDE
     Indication: ABNORMAL FAECES
     Dosage: UNK UNK, AS NEEDED (0-6 CAPSULES DAILY AS NEEDED)
     Route: 048
  30. PREDNISONE. [Concomitant]
     Active Substance: PREDNISONE
     Dosage: 10 MG, DAILY
  31. METOPROLOL SUCCINATE. [Concomitant]
     Active Substance: METOPROLOL SUCCINATE
     Dosage: 100 MG, DAILY
     Route: 048

REACTIONS (3)
  - Nephropathy [Unknown]
  - Presyncope [Recovered/Resolved]
  - Dizziness [Recovered/Resolved]

NARRATIVE: CASE EVENT DATE: 20181017
